FAERS Safety Report 6449404-6 (Version None)
Quarter: 2009Q4

REPORT INFORMATION
  Report Type: 
  Country: None (occurrence: None)
  Receive Date: 20091120
  Receipt Date: 20091111
  Transmission Date: 20100525
  Serious: Yes (Death)
  Sender: FDA-Public Use
  Company Number: CA-JNJFOC-20091105679

PATIENT
  Sex: Female
  Weight: 66.67 kg

DRUGS (6)
  1. IBUPROFEN [Suspect]
     Indication: OSTEOARTHRITIS
     Route: 048
  2. CALCIUM/COLECALCIFEROL [Concomitant]
  3. TIAZAC [Concomitant]
  4. NEXIUM [Concomitant]
     Indication: GASTROINTESTINAL DISORDER THERAPY
  5. DIOVAN HCT [Concomitant]
  6. ASPIRIN [Concomitant]

REACTIONS (1)
  - DEATH [None]
